FAERS Safety Report 6977599-4 (Version None)
Quarter: 2010Q3

REPORT INFORMATION
  Report Type: 
  Country: None (occurrence: None)
  Receive Date: 20100913
  Receipt Date: 20100902
  Transmission Date: 20110219
  Serious: Yes (Hospitalization, Other)
  Sender: FDA-Public Use
  Company Number: 2005BI004581

PATIENT
  Age: 43 Year
  Sex: Male
  Weight: 87 kg

DRUGS (14)
  1. AVONEX [Suspect]
     Indication: MULTIPLE SCLEROSIS
     Route: 030
     Dates: start: 19960101
  2. BACLOFEN [Concomitant]
     Indication: MUSCLE SPASTICITY
     Dates: start: 19750101
  3. ALLERGRA D [Concomitant]
     Indication: DRUG HYPERSENSITIVITY
     Dates: start: 19970101
  4. PREDNISONE [Concomitant]
     Indication: MULTIPLE SCLEROSIS
     Dates: start: 19930101
  5. TIMOPTIC-XE [Concomitant]
     Indication: OPTIC NEURITIS
     Dates: start: 19910101
  6. BETAGAN [Concomitant]
     Indication: DIABETES MELLITUS
  7. HUMILIN N [Concomitant]
     Indication: DIABETES MELLITUS
  8. ZESTRIL [Concomitant]
     Indication: CARDIAC FAILURE CONGESTIVE
     Dates: start: 19770101
  9. ZESTRIL [Concomitant]
     Indication: BLOOD PRESSURE
     Dates: start: 19970101
  10. TRICOR [Concomitant]
     Indication: BLOOD CHOLESTEROL
     Dates: start: 19950101
  11. ATROVENT [Concomitant]
     Indication: SLEEP APNOEA SYNDROME
     Dates: start: 19900101
  12. AMBIEN [Concomitant]
     Indication: SLEEP APNOEA SYNDROME
     Dates: start: 19970101
  13. NATURAL HERBS [Concomitant]
     Indication: ROUTINE HEALTH MAINTENANCE
  14. VITAMIN TAB [Concomitant]
     Indication: ROUTINE HEALTH MAINTENANCE

REACTIONS (9)
  - BLOOD CHOLESTEROL ABNORMAL [None]
  - BLOOD PRESSURE ABNORMAL [None]
  - BODY TEMPERATURE INCREASED [None]
  - CARDIAC OPERATION [None]
  - DYSPEPSIA [None]
  - FATIGUE [None]
  - LEUKAEMIC LYMPHOMA [None]
  - PAIN [None]
  - WHITE BLOOD CELL COUNT INCREASED [None]
